FAERS Safety Report 25956538 (Version 1)
Quarter: 2025Q4

REPORT INFORMATION
  Report Type: Spontaneous
  Country: CN (occurrence: CN)
  Receive Date: 20251024
  Receipt Date: 20251024
  Transmission Date: 20260117
  Serious: Yes (Life-Threatening, Hospitalization)
  Sender: NOVARTIS
  Company Number: CN-002147023-NVSC2025CN164084

PATIENT
  Age: 96 Year
  Sex: Female
  Weight: 55 kg

DRUGS (7)
  1. SACUBITRIL\VALSARTAN [Suspect]
     Active Substance: SACUBITRIL\VALSARTAN
     Indication: Cardiac failure
     Dosage: 50 MG, BID
     Route: 048
     Dates: start: 20251014, end: 20251015
  2. BACILLUS COAGULANS [Concomitant]
     Active Substance: BACILLUS COAGULANS
     Indication: Ill-defined disorder
     Dosage: 1.05 G, TID (NASAL FEEDING)
     Route: 045
     Dates: start: 20251013, end: 20251015
  3. MOSAPRIDE CITRATE [Concomitant]
     Active Substance: MOSAPRIDE CITRATE
     Indication: Gastrointestinal disorder
     Dosage: 5 MG, TID (NASAL FEEDING)
     Route: 045
     Dates: start: 20251013, end: 20251015
  4. SPIRONOLACTONE [Concomitant]
     Active Substance: SPIRONOLACTONE
     Indication: Hypertension
     Dosage: 20 MG, QD (NASAL FEEDING)
     Route: 045
     Dates: start: 20251014, end: 20251015
  5. METOPROLOL TARTRATE [Concomitant]
     Active Substance: METOPROLOL TARTRATE
     Indication: Cardiac failure
     Dosage: 25 MG, BID (NASAL FEEDING)
     Route: 045
     Dates: start: 20251013, end: 20251015
  6. ALMAGATE [Concomitant]
     Active Substance: ALMAGATE
     Indication: Gastrointestinal mucosal disorder
     Dosage: 1.5 G, TID (NASAL FEEDING)
     Route: 045
     Dates: start: 20251013, end: 20251015
  7. ATORVASTATIN CALCIUM [Concomitant]
     Active Substance: ATORVASTATIN CALCIUM
     Indication: Lipids increased
     Dosage: 20 MG, QD (NASAL FEEDING)
     Route: 045
     Dates: start: 20251014, end: 20251015

REACTIONS (2)
  - Blood pressure decreased [Recovering/Resolving]
  - Mental fatigue [Unknown]

NARRATIVE: CASE EVENT DATE: 20251016
